FAERS Safety Report 7237381-X (Version None)
Quarter: 2011Q1

REPORT INFORMATION
  Report Type: 
  Country: None (occurrence: None)
  Receive Date: 20110112
  Receipt Date: 20101228
  Transmission Date: 20110831
  Serious: Yes (Other)
  Sender: FDA-Public Use
  Company Number: JPI-P-013317

PATIENT
  Age: 40 Year
  Sex: Male
  Weight: 88.4514 kg

DRUGS (10)
  1. TESTOSTERONE [Concomitant]
  2. TADALAFIL [Concomitant]
  3. TAMSULOSIN HYDROCHLORIDE [Concomitant]
  4. PAROXETINE HCL [Concomitant]
  5. VALSARTAN [Concomitant]
  6. XYREM [Suspect]
     Indication: NARCOLEPSY
     Dosage: (2 IN 1 D),ORAL ; 9 GM (4.5 GM,2 IN 1 D),ORAL ; 9 GM (4.5 GM,2 IN 1 D),ORAL
     Route: 048
     Dates: start: 20101201
  7. XYREM [Suspect]
     Indication: NARCOLEPSY
     Dosage: (2 IN 1 D),ORAL ; 9 GM (4.5 GM,2 IN 1 D),ORAL ; 9 GM (4.5 GM,2 IN 1 D),ORAL
     Route: 048
     Dates: start: 20090824
  8. XYREM [Suspect]
     Indication: NARCOLEPSY
     Dosage: (2 IN 1 D),ORAL ; 9 GM (4.5 GM,2 IN 1 D),ORAL ; 9 GM (4.5 GM,2 IN 1 D),ORAL
     Route: 048
     Dates: end: 20101201
  9. SOMATROPIN [Concomitant]
  10. THYROID [Concomitant]

REACTIONS (1)
  - ATRIAL FIBRILLATION [None]
